FAERS Safety Report 9934419 (Version 2)
Quarter: 2014Q1

REPORT INFORMATION
  Report Type: Spontaneous
  Country: US (occurrence: US)
  Receive Date: 20140228
  Receipt Date: 20140310
  Transmission Date: 20141002
  Serious: Yes (Hospitalization, Other)
  Sender: FDA-Public Use
  Company Number: US-BAXTER-2014BAX009307

PATIENT
  Sex: Female

DRUGS (5)
  1. DIANEAL PD2 [Suspect]
     Indication: RENAL FAILURE CHRONIC
     Route: 033
     Dates: start: 200906
  2. DIANEAL PD2 [Suspect]
     Dates: start: 200906
  3. DIANEAL PD2 [Suspect]
     Indication: RENAL FAILURE CHRONIC
     Route: 033
     Dates: start: 200906
  4. DIANEAL PD2 [Suspect]
     Dates: start: 200906
  5. MECLIZINE [Concomitant]
     Indication: DIZZINESS
     Route: 048

REACTIONS (5)
  - Weight decreased [Not Recovered/Not Resolved]
  - Fall [Recovering/Resolving]
  - Concussion [Recovering/Resolving]
  - Musculoskeletal stiffness [Recovering/Resolving]
  - Hypotension [Not Recovered/Not Resolved]
